FAERS Safety Report 19879486 (Version 1)
Quarter: 2021Q3

REPORT INFORMATION
  Report Type: Spontaneous
  Country: US (occurrence: US)
  Receive Date: 20210924
  Receipt Date: 20210924
  Transmission Date: 20211014
  Serious: No
  Sender: FDA-Public Use
  Company Number: US-PFIZER INC-2021276935

PATIENT
  Age: 15 Year
  Sex: Male
  Weight: 142.6 kg

DRUGS (2)
  1. GENOTROPIN [Suspect]
     Active Substance: SOMATROPIN
     Dosage: 1.5 MG DAILY SUBCUTANEOUSLY ROTATED TO BACK OF THE ARMS, BUTTOCKS AND STOMACH AREA
     Route: 058
     Dates: start: 201904, end: 20200309
  2. GENOTROPIN [Suspect]
     Active Substance: SOMATROPIN
     Indication: GROWTH HORMONE DEFICIENCY
     Dosage: 1.5 MG DAILY SUBCUTANEOUSLY ROTATED TO BACK OF THE ARMS, BUTTOCKS AND STOMACH AREA
     Route: 058
     Dates: start: 201904, end: 20200226

REACTIONS (3)
  - Drug dose omission by device [Unknown]
  - Wrong device used [Recovered/Resolved]
  - Incorrect dose administered [Recovered/Resolved]

NARRATIVE: CASE EVENT DATE: 20200226
